FAERS Safety Report 16109360 (Version 1)
Quarter: 2019Q1

REPORT INFORMATION
  Report Type: Spontaneous
  Country: FR (occurrence: FR)
  Receive Date: 20190324
  Receipt Date: 20190324
  Transmission Date: 20190418
  Serious: Yes (Hospitalization)
  Sender: FDA-Public Use
  Company Number: FR-ACCORD-114864

PATIENT
  Age: 70 Year
  Sex: Female
  Weight: 40 kg

DRUGS (8)
  1. OXALIPLATIN. [Suspect]
     Active Substance: OXALIPLATIN
     Indication: CHOLANGIOCARCINOMA
     Dosage: CUMULATIVE DOSE 382 MG
     Route: 041
     Dates: start: 20180710, end: 20181017
  2. CHOLURSO [Concomitant]
     Active Substance: URSODIOL
     Dosage: STRENGTH 500 MG, 500 MG MORNING AND 250 MG EVENING
     Route: 048
  3. ALDACTONE [Concomitant]
     Active Substance: SPIRONOLACTONE
     Dosage: STRENGTH 50 MG
  4. CREON [Concomitant]
     Active Substance: PANCRELIPASE AMYLASE\PANCRELIPASE LIPASE\PANCRELIPASE PROTEASE
     Dosage: STRENGTH 25,000 U, GRANULES IN
  5. FLUOROURACIL. [Suspect]
     Active Substance: FLUOROURACIL
     Indication: CHOLANGIOCARCINOMA
     Dosage: CUMULATIVE DOSE 29232 MG
     Route: 041
     Dates: start: 20180710, end: 20181017
  6. LASILIX FAIBLE [Concomitant]
     Active Substance: FUROSEMIDE
     Dosage: STRENGTH 20 MG
     Route: 048
  7. PANTOPRAZOLE SODIUM. [Concomitant]
     Active Substance: PANTOPRAZOLE SODIUM
     Dosage: STRENGTH 40 MG
     Route: 048
  8. LASILIX [Concomitant]
     Active Substance: FUROSEMIDE
     Dosage: STRENGTH 40 MG, SCORED TABLET

REACTIONS (3)
  - Diarrhoea [Recovered/Resolved]
  - Vomiting [Recovered/Resolved]
  - Weight decreased [Not Recovered/Not Resolved]

NARRATIVE: CASE EVENT DATE: 20181017
